FAERS Safety Report 4353801-2 (Version None)
Quarter: 2004Q2

REPORT INFORMATION
  Report Type: 
  Country: None (occurrence: None)
  Receive Date: 20040429
  Receipt Date: 20030505
  Transmission Date: 20050107
  Serious: Yes (Other)
  Sender: FDA-Public Use
  Company Number: 1672701A

PATIENT
  Age: 31 Year
  Sex: Male

DRUGS (1)
  1. IMODIUM A-D [Suspect]
     Indication: DIARRHOEA
     Dosage: 4MG, ONCE, PO
     Route: 048
     Dates: start: 20030502

REACTIONS (1)
  - CONSTIPATION [None]
